FAERS Safety Report 7359858-9 (Version None)
Quarter: 2011Q1

REPORT INFORMATION
  Report Type: 
  Country: None (occurrence: None)
  Receive Date: 20110317
  Receipt Date: 20110307
  Transmission Date: 20110831
  Serious: Yes (Hospitalization)
  Sender: FDA-Public Use
  Company Number: PHHY2011US08935

PATIENT
  Sex: Male

DRUGS (1)
  1. TOBI [Suspect]
     Indication: BRONCHIECTASIS
     Dosage: 300 MG, BID
     Dates: start: 20110128

REACTIONS (5)
  - ANXIETY [None]
  - PNEUMONIA [None]
  - SINUSITIS [None]
  - OXYGEN SATURATION DECREASED [None]
  - TACHYCARDIA [None]
